FAERS Safety Report 5957223-X (Version None)
Quarter: 2008Q4

REPORT INFORMATION
  Report Type: 
  Country: None (occurrence: None)
  Receive Date: 20081118
  Receipt Date: 20081105
  Transmission Date: 20090506
  Serious: Yes (Other)
  Sender: FDA-Public Use
  Company Number: BR-ELI_LILLY_AND_COMPANY-BR200809005987

PATIENT
  Age: 36 Year
  Sex: Male
  Weight: 108.9 kg

DRUGS (4)
  1. BYETTA [Suspect]
     Indication: TYPE 2 DIABETES MELLITUS
     Dosage: 10 UG, UNKNOWN
     Route: 058
     Dates: start: 20080509, end: 20081005
  2. LANTUS [Concomitant]
     Dosage: UNK, DAILY (1/D)
     Route: 065
  3. LANTUS [Concomitant]
     Dosage: 80 IU, DAILY (1/D)
     Route: 065
  4. INSULIN ASPART [Concomitant]
     Dosage: 15 IU, DAILY (1/D)
     Route: 065

REACTIONS (3)
  - EROSIVE OESOPHAGITIS [None]
  - PANCREATITIS [None]
  - WEIGHT DECREASED [None]
